FAERS Safety Report 13041136 (Version 1)
Quarter: 2016Q4

REPORT INFORMATION
  Report Type: Spontaneous
  Country: US (occurrence: US)
  Receive Date: 20161219
  Receipt Date: 20161219
  Transmission Date: 20170207
  Serious: Yes (Other)
  Sender: FDA-Public Use
  Company Number: US-PFIZER INC-2016581908

PATIENT
  Age: 35 Year
  Sex: Female
  Weight: 109 kg

DRUGS (3)
  1. CLONIDINE. [Concomitant]
     Active Substance: CLONIDINE
     Indication: BLOOD PRESSURE ABNORMAL
     Dosage: 0.2 MG, UNK
  2. NOVOLOG [Concomitant]
     Active Substance: INSULIN ASPART
     Indication: DIABETES MELLITUS
     Dosage: SLIDIDNG DOSE
  3. ZOLOFT [Suspect]
     Active Substance: SERTRALINE HYDROCHLORIDE
     Indication: DEPRESSION
     Dosage: 50 MG, 1X/DAY, IN THE MORNING
     Route: 048
     Dates: start: 201609, end: 20161026

REACTIONS (7)
  - Systemic lupus erythematosus [Unknown]
  - Condition aggravated [Unknown]
  - Movement disorder [Unknown]
  - Pain [Unknown]
  - Sexual dysfunction [Unknown]
  - Personality disorder [Unknown]
  - Depression [Unknown]

NARRATIVE: CASE EVENT DATE: 2016
